FAERS Safety Report 10141947 (Version 3)
Quarter: 2014Q3

REPORT INFORMATION
  Report Type: Spontaneous
  Country: JP (occurrence: JP)
  Receive Date: 20140429
  Receipt Date: 20140925
  Transmission Date: 20150326
  Serious: Yes (Hospitalization, Other)
  Sender: FDA-Public Use
  Company Number: JP-009507513-1404JPN014117

PATIENT
  Sex: Male

DRUGS (8)
  1. JANUVIA [Suspect]
     Active Substance: SITAGLIPTIN PHOSPHATE
     Indication: DIABETES MELLITUS
     Dosage: 25 MG, QD
     Route: 048
     Dates: start: 201403, end: 201404
  2. AVOLVE [Concomitant]
     Active Substance: DUTASTERIDE
     Dosage: DAILY DOSAGE UNKNOWN
     Route: 065
  3. UBTEC [Concomitant]
     Dosage: DAILY DOSAGE UNKNOWN
     Route: 065
  4. URIEF [Concomitant]
     Active Substance: SILODOSIN
     Indication: DYSURIA
     Dosage: DAILY DOSAGE UNKNOWN
     Route: 065
     Dates: start: 2012
  5. EBRANTIL [Concomitant]
     Active Substance: URAPIDIL
     Dosage: DAILY DOSAGE UNKNOWN
     Route: 065
  6. ROHYPNOL [Suspect]
     Active Substance: FLUNITRAZEPAM
     Indication: INSOMNIA
     Dosage: 0.5 MG, TAKEN WHEN NEDDED
     Route: 048
     Dates: start: 201403, end: 201404
  7. EVIPROSTAT (HORSETAIL (+) MANGANESE SULFATE (+) PIPSISSEWA (+) POPULUS [Concomitant]
     Dosage: DAILY DOSAGE UNKNOWN
     Route: 065
  8. TRYPTANOL [Concomitant]
     Active Substance: AMITRIPTYLINE
     Dosage: DAILY DOSAGE UNKNOWN
     Route: 065

REACTIONS (2)
  - Platelet count decreased [Recovering/Resolving]
  - Transfusion [Recovering/Resolving]

NARRATIVE: CASE EVENT DATE: 20140422
